FAERS Safety Report 4426839-4 (Version None)
Quarter: 2004Q3

REPORT INFORMATION
  Report Type: 
  Country: None (occurrence: None)
  Receive Date: 20040816
  Receipt Date: 20040805
  Transmission Date: 20050211
  Serious: Yes (Other)
  Sender: FDA-Public Use
  Company Number: AU-GLAXOSMITHKLINE-B0342260A

PATIENT
  Age: 34 Year
  Sex: Male

DRUGS (1)
  1. ZYBAN [Suspect]
     Indication: SMOKING CESSATION THERAPY
     Dosage: 1TAB VARIABLE DOSE
     Dates: end: 20040803

REACTIONS (4)
  - FEELING ABNORMAL [None]
  - MENTAL DISORDER [None]
  - PERSONALITY CHANGE [None]
  - PSYCHOTIC DISORDER [None]
